FAERS Safety Report 22114060 (Version 1)
Quarter: 2023Q1

REPORT INFORMATION
  Report Type: Spontaneous
  Country: US (occurrence: US)
  Receive Date: 20230320
  Receipt Date: 20230320
  Transmission Date: 20230418
  Serious: No
  Sender: FDA-Public Use
  Company Number: US-SA-SAC20230316000124

PATIENT
  Sex: Female

DRUGS (1)
  1. DUPIXENT [Suspect]
     Active Substance: DUPILUMAB
     Indication: Dermatitis atopic
     Dosage: 300 MG, QOW
     Route: 058

REACTIONS (5)
  - Discomfort [Recovering/Resolving]
  - Infection [Recovering/Resolving]
  - Sleep disorder [Recovering/Resolving]
  - Rash [Recovering/Resolving]
  - Dermatitis atopic [Recovering/Resolving]
